FAERS Safety Report 12555662 (Version 1)
Quarter: 2016Q3

REPORT INFORMATION
  Report Type: Spontaneous
  Country: US (occurrence: None)
  Receive Date: 20160713
  Receipt Date: 20160713
  Transmission Date: 20161109
  Serious: No
  Sender: FDA-Public Use
  Company Number: None

PATIENT
  Age: 41 Year
  Sex: Female
  Weight: 117.94 kg

DRUGS (9)
  1. FOLLISTIM AQ [Suspect]
     Active Substance: FOLLITROPIN
     Indication: INFERTILITY
     Route: 058
     Dates: start: 20160428, end: 20160507
  2. NAC [Concomitant]
  3. PROVERA [Concomitant]
     Active Substance: MEDROXYPROGESTERONE ACETATE
  4. MULTIVITAMIN [Concomitant]
     Active Substance: VITAMINS
  5. CLOMID [Concomitant]
     Active Substance: CLOMIPHENE CITRATE
  6. INHALER [Concomitant]
     Active Substance: UNSPECIFIED INGREDIENT
  7. VITAMIN D [Concomitant]
     Active Substance: CHOLECALCIFEROL
  8. METAMUCIL [Concomitant]
     Active Substance: PLANTAGO SEED
  9. OVASITOL [Concomitant]

REACTIONS (4)
  - Cholelithiasis [None]
  - Pain [None]
  - Burning sensation [None]
  - Dyspepsia [None]

NARRATIVE: CASE EVENT DATE: 20160430
